FAERS Safety Report 21772509 (Version 1)
Quarter: 2022Q4

REPORT INFORMATION
  Report Type: Spontaneous
  Country: FR (occurrence: FR)
  Receive Date: 20221223
  Receipt Date: 20221223
  Transmission Date: 20230113
  Serious: Yes (Hospitalization)
  Sender: FDA-Public Use
  Company Number: None

PATIENT
  Age: 39 Year
  Sex: Male
  Weight: 59 kg

DRUGS (3)
  1. QUETIAPINE [Suspect]
     Active Substance: QUETIAPINE
     Indication: Psychotic disorder
     Dosage: UNIT DOSE : 400 MG
     Route: 065
  2. HALOPERIDOL [Suspect]
     Active Substance: HALOPERIDOL
     Indication: Psychotic disorder
     Dosage: 5 MILLIGRAM DAILY; 2MG MORNING AND 3MG EVENING
     Route: 065
     Dates: start: 202208
  3. MIRTAZAPINE [Concomitant]
     Active Substance: MIRTAZAPINE
     Indication: Depression

REACTIONS (2)
  - Osmotic demyelination syndrome [Not Recovered/Not Resolved]
  - Inappropriate antidiuretic hormone secretion [Not Recovered/Not Resolved]

NARRATIVE: CASE EVENT DATE: 20221101
